FAERS Safety Report 9054586 (Version 1)
Quarter: 2013Q1

REPORT INFORMATION
  Report Type: Report from Study
  Country: US (occurrence: US)
  Receive Date: 20130208
  Receipt Date: 20130208
  Transmission Date: 20140127
  Serious: Yes (Other)
  Sender: FDA-Public Use
  Company Number: US-ABBOTT-13P-163-1046919-00

PATIENT
  Sex: 0

DRUGS (2)
  1. VALPROIC ACID [Suspect]
     Indication: NON-SMALL CELL LUNG CANCER
     Dosage: 10 MG/KG/DAY DAILY ON DAYS 5-21 OF 28 DAY CYCLE
     Route: 048
  2. DECITABINE [Concomitant]
     Indication: NON-SMALL CELL LUNG CANCER
     Dosage: 5 MG/M2 X 10 OVER 1 HOUR ON DAYS 1-10 OF 28 DAY CYCLE
     Route: 042

REACTIONS (1)
  - Neutropenia [Unknown]
